FAERS Safety Report 5846976-7 (Version None)
Quarter: 2008Q3

REPORT INFORMATION
  Report Type: 
  Country: None (occurrence: None)
  Receive Date: 20080815
  Receipt Date: 20080804
  Transmission Date: 20090109
  Serious: Yes (Other)
  Sender: FDA-Public Use
  Company Number: GB-PFIZER INC-2008058898

PATIENT
  Sex: Male
  Weight: 113 kg

DRUGS (12)
  1. CHANTIX [Suspect]
     Indication: SMOKING CESSATION THERAPY
     Route: 048
     Dates: start: 20080628, end: 20080706
  2. ACETYLSALICYLIC ACID SRT [Concomitant]
  3. ESOMEPRAZOLE [Concomitant]
  4. METFORMIN HYDROCHLORIDE [Concomitant]
  5. AMLODIPINE [Concomitant]
  6. EZETIMIBE [Concomitant]
  7. ALL OTHER THERAPEUTIC PRODUCTS [Concomitant]
  8. PIOGLITAZONE HCL [Concomitant]
  9. GLICLAZIDE [Concomitant]
  10. MOMETASONE FUROATE [Concomitant]
  11. ORLISTAT [Concomitant]
  12. SIMVASTATIN [Concomitant]

REACTIONS (6)
  - DIARRHOEA [None]
  - DIZZINESS [None]
  - FLATULENCE [None]
  - LABYRINTHITIS [None]
  - MALAISE [None]
  - VISION BLURRED [None]
